FAERS Safety Report 16929772 (Version 2)
Quarter: 2020Q4

REPORT INFORMATION
  Report Type: Report from Study
  Country: FR (occurrence: FR)
  Receive Date: 20191017
  Receipt Date: 20201012
  Transmission Date: 20210113
  Serious: Yes (Life-Threatening)
  Sender: FDA-Public Use
  Company Number: FR-ALLERGAN-1929315US

PATIENT
  Sex: Female

DRUGS (1)
  1. DALBAVANCIN HCL 500MG PWD (11285X) [Suspect]
     Active Substance: DALBAVANCIN HYDROCHLORIDE
     Indication: DEVICE RELATED INFECTION
     Dosage: 1500 MG, SINGLE
     Route: 065
     Dates: start: 20190719, end: 20190719

REACTIONS (3)
  - Hypotension [Recovered/Resolved]
  - Off label use [Unknown]
  - Syncope [Recovered/Resolved]

NARRATIVE: CASE EVENT DATE: 20190719
